FAERS Safety Report 13686921 (Version 18)
Quarter: 2019Q3

REPORT INFORMATION
  Report Type: Spontaneous
  Country: CA (occurrence: CA)
  Receive Date: 20170623
  Receipt Date: 20190916
  Transmission Date: 20191004
  Serious: Yes (Other)
  Sender: FDA-Public Use
  Company Number: CA-TEVA-781729ACC

PATIENT
  Age: 84 Year
  Sex: Female

DRUGS (52)
  1. BETAHISTINE HYDROCHLORIDE [Suspect]
     Active Substance: BETAHISTINE HYDROCHLORIDE
     Route: 065
  2. BETAHISTINE HYDROCHLORIDE [Suspect]
     Active Substance: BETAHISTINE HYDROCHLORIDE
     Dosage: 16 MILLIGRAM DAILY;
     Route: 065
  3. BISOPROLOL FUMARATE. [Suspect]
     Active Substance: BISOPROLOL FUMARATE
     Route: 065
  4. DIMENHYDRINATE. [Suspect]
     Active Substance: DIMENHYDRINATE
     Indication: NAUSEA
     Route: 065
  5. RISEDRONATE SODIUM-BP [Suspect]
     Active Substance: RISEDRONATE SODIUM
     Route: 065
  6. REACTINE (CETIRIZINE) [Suspect]
     Active Substance: CETIRIZINE HYDROCHLORIDE
     Indication: EYE PRURITUS
     Dosage: 20 MILLIGRAM DAILY;
     Route: 065
  7. LEVOTHYROXINE. [Suspect]
     Active Substance: LEVOTHYROXINE
     Indication: HYPOTHYROIDISM
     Dosage: .05 MILLIGRAM DAILY;
     Route: 065
  8. VITAMIN D [Suspect]
     Active Substance: VITAMIN D NOS
     Route: 065
  9. CANDESARTAN HCT [Suspect]
     Active Substance: CANDESARTAN CILEXETIL\HYDROCHLOROTHIAZIDE
     Dosage: 4 MILLIGRAM DAILY;
     Route: 048
  10. BISOPROLOL [Suspect]
     Active Substance: BISOPROLOL
  11. ERGOCALCIFEROL. [Suspect]
     Active Substance: ERGOCALCIFEROL
     Indication: OSTEOPOROSIS
     Route: 065
  12. TIMOLOL MALEATE. [Suspect]
     Active Substance: TIMOLOL MALEATE
     Route: 065
  13. BETAHISTINE HYDROCHLORIDE [Suspect]
     Active Substance: BETAHISTINE HYDROCHLORIDE
     Dosage: 8 MILLIGRAM DAILY;
     Route: 065
  14. CARBIDOPA AND LEVODOPA [Suspect]
     Active Substance: CARBIDOPA\LEVODOPA
     Route: 065
  15. RISEDRONATE SODIUM-BP [Suspect]
     Active Substance: RISEDRONATE SODIUM
     Route: 065
  16. RISEDRONATE SODIUM-BP [Suspect]
     Active Substance: RISEDRONATE SODIUM
     Dosage: 150 MILLIGRAM DAILY;
     Route: 065
  17. ROSUVASTATIN. [Suspect]
     Active Substance: ROSUVASTATIN
     Indication: HAEMORRHAGIC STROKE
     Dosage: 20 MILLIGRAM DAILY;
     Route: 065
  18. APO-METOCLOP [Suspect]
     Active Substance: METOCLOPRAMIDE HYDROCHLORIDE
     Indication: DIVERTICULITIS
     Dosage: 30 MILLIGRAM DAILY;
     Route: 065
  19. APO-METOCLOP [Suspect]
     Active Substance: METOCLOPRAMIDE HYDROCHLORIDE
     Route: 065
  20. VITAMIN D [Suspect]
     Active Substance: VITAMIN D NOS
     Indication: PRODUCT USED FOR UNKNOWN INDICATION
     Route: 065
  21. CANDESARTAN HCT [Suspect]
     Active Substance: CANDESARTAN CILEXETIL\HYDROCHLOROTHIAZIDE
     Route: 065
  22. CITALOPRAM [Suspect]
     Active Substance: CITALOPRAM HYDROBROMIDE
     Indication: DEPRESSED MOOD
     Dosage: 5 MILLIGRAM DAILY;
     Route: 065
  23. TIMOLOL. [Suspect]
     Active Substance: TIMOLOL
     Indication: GLAUCOMA
     Route: 047
  24. BETAHISTINE HYDROCHLORIDE [Suspect]
     Active Substance: BETAHISTINE HYDROCHLORIDE
     Dosage: 24 MILLIGRAM DAILY;
     Route: 065
  25. DIMENHYDRINATE. [Suspect]
     Active Substance: DIMENHYDRINATE
     Route: 065
  26. VITAMIN D [Suspect]
     Active Substance: VITAMIN D NOS
     Indication: OSTEOPOROSIS
     Dosage: 1000 IU (INTERNATIONAL UNIT) DAILY;
     Route: 065
  27. METOCLOPRAMIDE. [Suspect]
     Active Substance: METOCLOPRAMIDE
     Indication: DIVERTICULITIS
     Dosage: 30 MILLIGRAM DAILY;
     Route: 065
  28. PANTOPRAZOLE [Suspect]
     Active Substance: PANTOPRAZOLE
     Indication: NAUSEA
     Dosage: 40 MILLIGRAM DAILY;
     Route: 048
  29. RISEDRONATE SODIUM-BP [Suspect]
     Active Substance: RISEDRONATE SODIUM
     Indication: OSTEOPOROSIS
     Dosage: 150 MILLIGRAM DAILY;
     Route: 065
  30. TRAZODONE [Suspect]
     Active Substance: TRAZODONE HYDROCHLORIDE
     Route: 065
  31. CANDESARTAN HCT [Suspect]
     Active Substance: CANDESARTAN CILEXETIL\HYDROCHLOROTHIAZIDE
     Route: 065
  32. APO-LEVOCARB CR [Suspect]
     Active Substance: CARBIDOPA\LEVODOPA
     Route: 065
  33. TIMOLOL MALEATE. [Suspect]
     Active Substance: TIMOLOL MALEATE
     Indication: GLAUCOMA
     Route: 047
  34. BISOPROLOL FUMARATE. [Suspect]
     Active Substance: BISOPROLOL FUMARATE
     Indication: PRODUCT USED FOR UNKNOWN INDICATION
     Dosage: 1.25 MILLIGRAM DAILY;
     Route: 065
  35. CARBIDOPA AND LEVODOPA [Suspect]
     Active Substance: CARBIDOPA\LEVODOPA
     Indication: PARKINSON^S DISEASE
     Route: 065
  36. APO-LEVOCARB CR [Suspect]
     Active Substance: CARBIDOPA\LEVODOPA
     Indication: PARKINSON^S DISEASE
     Route: 065
  37. ACTONEL [Suspect]
     Active Substance: RISEDRONATE SODIUM
     Indication: OSTEOPOROSIS
     Route: 065
  38. BETAHISTINE HYDROCHLORIDE [Suspect]
     Active Substance: BETAHISTINE HYDROCHLORIDE
     Indication: VERTIGO
     Dosage: 24 MILLIGRAM DAILY;
     Route: 065
  39. BETAHISTINE HYDROCHLORIDE [Suspect]
     Active Substance: BETAHISTINE HYDROCHLORIDE
     Dosage: 16 MILLIGRAM DAILY;
     Route: 065
  40. CANDESARTAN. [Suspect]
     Active Substance: CANDESARTAN
     Indication: HYPERTENSION
     Dosage: 4 MILLIGRAM DAILY;
     Route: 065
  41. RISEDRONATE SODIUM-BP [Suspect]
     Active Substance: RISEDRONATE SODIUM
     Route: 065
  42. APO-CETIRIZINE [Suspect]
     Active Substance: CETIRIZINE HYDROCHLORIDE
     Indication: EYE PRURITUS
     Dosage: 20 MILLIGRAM DAILY;
     Route: 065
  43. APO-LEVOCARB CR [Suspect]
     Active Substance: CARBIDOPA\LEVODOPA
     Route: 065
  44. LEVOTHYROXINE. [Suspect]
     Active Substance: LEVOTHYROXINE
     Route: 065
  45. CANDESARTAN HCT [Suspect]
     Active Substance: CANDESARTAN CILEXETIL\HYDROCHLOROTHIAZIDE
     Indication: HYPERTENSION
     Dosage: 4 MILLIGRAM DAILY;
     Route: 065
  46. BISOPROLOL [Suspect]
     Active Substance: BISOPROLOL
     Route: 065
  47. BETAHISTINE HYDROCHLORIDE [Suspect]
     Active Substance: BETAHISTINE HYDROCHLORIDE
     Dosage: 8 MILLIGRAM DAILY;
     Route: 065
  48. BETAHISTINE HYDROCHLORIDE [Suspect]
     Active Substance: BETAHISTINE HYDROCHLORIDE
     Dosage: UNKNOWN
     Route: 065
  49. MIRTAZAPINE. [Suspect]
     Active Substance: MIRTAZAPINE
     Indication: DEPRESSED MOOD
     Dosage: 7.5 MILLIGRAM DAILY;
     Route: 065
  50. ROSUVASTATIN. [Suspect]
     Active Substance: ROSUVASTATIN
     Route: 065
  51. TRAZODONE [Suspect]
     Active Substance: TRAZODONE HYDROCHLORIDE
     Indication: INSOMNIA
     Dosage: 50 MILLIGRAM DAILY;
     Route: 048
  52. TRAZODONE [Suspect]
     Active Substance: TRAZODONE HYDROCHLORIDE
     Dosage: 50 MILLIGRAM DAILY;
     Route: 065

REACTIONS (23)
  - Condition aggravated [Not Recovered/Not Resolved]
  - Decreased appetite [Not Recovered/Not Resolved]
  - Dry mouth [Not Recovered/Not Resolved]
  - Nausea [Not Recovered/Not Resolved]
  - Fall [Not Recovered/Not Resolved]
  - Abdominal distension [Not Recovered/Not Resolved]
  - Constipation [Not Recovered/Not Resolved]
  - Parkinson^s disease [Not Recovered/Not Resolved]
  - Vitamin B12 decreased [Not Recovered/Not Resolved]
  - Hypotension [Not Recovered/Not Resolved]
  - Vertigo [Not Recovered/Not Resolved]
  - Drug ineffective [Not Recovered/Not Resolved]
  - Underdose [Unknown]
  - Loss of personal independence in daily activities [Not Recovered/Not Resolved]
  - Eye pruritus [Not Recovered/Not Resolved]
  - Depressed mood [Not Recovered/Not Resolved]
  - Lacrimation increased [Not Recovered/Not Resolved]
  - Fatigue [Not Recovered/Not Resolved]
  - Dizziness [Not Recovered/Not Resolved]
  - Vomiting [Not Recovered/Not Resolved]
  - Off label use [Unknown]
  - Product use in unapproved indication [Recovered/Resolved]
  - Hypersensitivity [Not Recovered/Not Resolved]
